FAERS Safety Report 6796307-3 (Version None)
Quarter: 2010Q2

REPORT INFORMATION
  Report Type: 
  Country: None (occurrence: None)
  Receive Date: 20100624
  Receipt Date: 20100624
  Transmission Date: 20101027
  Serious: Yes (Death)
  Sender: FDA-Public Use
  Company Number: None

PATIENT
  Age: 63 Year
  Sex: Male
  Weight: 77.5651 kg

DRUGS (1)
  1. DILAUDID [Suspect]

REACTIONS (3)
  - DIZZINESS [None]
  - DYSURIA [None]
  - PRURITUS [None]
